FAERS Safety Report 12856787 (Version 1)
Quarter: 2016Q4

REPORT INFORMATION
  Report Type: Spontaneous
  Country: US (occurrence: US)
  Receive Date: 20161018
  Receipt Date: 20161018
  Transmission Date: 20170207
  Serious: No
  Sender: FDA-Public Use
  Company Number: None

PATIENT
  Age: 77 Year
  Sex: Female
  Weight: 67.13 kg

DRUGS (15)
  1. CARBAMAZEPINE ER TABS [Concomitant]
     Active Substance: CARBAMAZEPINE
  2. GREEN TEA CAPSULES [Concomitant]
  3. POT CITRATE ER TABS 100^S 10 MEQ [Suspect]
     Active Substance: POTASSIUM CITRATE
     Indication: PROPHYLAXIS
     Dosage: POTASSIUM CITRATE - 1080 MG TABLET - 2 TABLETS TWICE A DAY - TOTAL 4 TABLETS?HAVE TAKEN IT FOR 3 YEARS-STILL TAKING IT-DO NOT WANT TO GET KIDNEY STONES?
     Route: 048
     Dates: start: 2013
  4. L-THYROXINE (SYNTHROID) [Concomitant]
  5. ENZYME CO-Q-10 [Concomitant]
  6. RED YEAST RICE [Concomitant]
     Active Substance: DIETARY SUPPLEMENT
  7. GLUCOSAMINE/CHONDROITIN /08437701/ [Concomitant]
     Active Substance: CHONDROITIN SULFATE (BOVINE)\GLUCOSAMINE SULFATE
  8. POT CITRATE ER TABS 100^S 10 MEQ [Suspect]
     Active Substance: POTASSIUM CITRATE
     Indication: NEPHROLITHIASIS
     Dosage: POTASSIUM CITRATE - 1080 MG TABLET - 2 TABLETS TWICE A DAY - TOTAL 4 TABLETS?HAVE TAKEN IT FOR 3 YEARS-STILL TAKING IT-DO NOT WANT TO GET KIDNEY STONES?
     Route: 048
     Dates: start: 2013
  9. ASPIRIN. [Concomitant]
     Active Substance: ASPIRIN
  10. VITAMIN E [Concomitant]
     Active Substance: .ALPHA.-TOCOPHEROL
  11. TURMERIC CURCUMIN [Concomitant]
     Active Substance: TURMERIC
  12. ATORVASTATIN [Concomitant]
     Active Substance: ATORVASTATIN
  13. VITAMIN B12 [Concomitant]
     Active Substance: CYANOCOBALAMIN
  14. FISH OIL [Concomitant]
     Active Substance: FISH OIL
  15. CINNAMON CAPSULES [Concomitant]

REACTIONS (1)
  - Dental caries [None]

NARRATIVE: CASE EVENT DATE: 2015
